FAERS Safety Report 4302688-2 (Version None)
Quarter: 2004Q1

REPORT INFORMATION
  Report Type: 
  Country: None (occurrence: None)
  Receive Date: 20040220
  Receipt Date: 20040206
  Transmission Date: 20041129
  Serious: Yes (Life-Threatening, Other)
  Sender: FDA-Public Use
  Company Number: 2004007166

PATIENT
  Age: 47 Year
  Sex: Male
  Weight: 70.3075 kg

DRUGS (3)
  1. GEODON [Suspect]
     Indication: SCHIZOPHRENIA
     Dosage: 160 MG (BID), ORAL
     Route: 048
     Dates: start: 20031201
  2. VALPROATE SODIUM [Concomitant]
  3. TOPIRAMATE [Concomitant]

REACTIONS (3)
  - CONDITION AGGRAVATED [None]
  - PHARMACEUTICAL PRODUCT COMPLAINT [None]
  - SCHIZOPHRENIA [None]
